FAERS Safety Report 6956432-0 (Version None)
Quarter: 2010Q3

REPORT INFORMATION
  Report Type: 
  Country: None (occurrence: None)
  Receive Date: 20100830
  Receipt Date: 20100827
  Transmission Date: 20110219
  Serious: Yes (Other)
  Sender: FDA-Public Use
  Company Number: B0671812A

PATIENT
  Age: 23 Year
  Sex: Female
  Weight: 58 kg

DRUGS (1)
  1. RANITIDINE [Suspect]
     Route: 048
     Dates: start: 20100816, end: 20100817

REACTIONS (3)
  - CHEST PAIN [None]
  - DYSPNOEA [None]
  - HEART RATE INCREASED [None]
